FAERS Safety Report 9283214 (Version 1)
Quarter: 2013Q2

REPORT INFORMATION
  Report Type: Spontaneous
  Country: US (occurrence: US)
  Receive Date: 20130510
  Receipt Date: 20130510
  Transmission Date: 20140414
  Serious: No
  Sender: FDA-Public Use
  Company Number: US-GLAXOSMITHKLINE-A0988796A

PATIENT
  Age: 55 Year
  Sex: Female
  Weight: 61.4 kg

DRUGS (3)
  1. TYKERB [Suspect]
     Dosage: 1000MG PER DAY
     Route: 048
  2. LIPITOR [Concomitant]
  3. IMODIUM AD [Concomitant]

REACTIONS (3)
  - Diarrhoea [Unknown]
  - Rash [Unknown]
  - Dermatitis acneiform [Unknown]
